FAERS Safety Report 5710537-0 (Version None)
Quarter: 2008Q2

REPORT INFORMATION
  Report Type: 
  Country: None (occurrence: None)
  Receive Date: 20080415
  Receipt Date: 20080402
  Transmission Date: 20081010
  Serious: Yes (Hospitalization, Disabling)
  Sender: FDA-Public Use
  Company Number: ANTA0800070

PATIENT
  Sex: 0

DRUGS (3)
  1. FENOFIBRATE [Suspect]
     Indication: DRUG USE FOR UNKNOWN INDICATION
  2. DOXYCYCLINE [Concomitant]
  3. VYTORIN [Concomitant]

REACTIONS (2)
  - APLASTIC ANAEMIA [None]
  - MUSCULAR WEAKNESS [None]
